FAERS Safety Report 7771634-1 (Version None)
Quarter: 2011Q3

REPORT INFORMATION
  Report Type: 
  Country: None (occurrence: None)
  Receive Date: 20110922
  Receipt Date: 20110413
  Transmission Date: 20111222
  Serious: No
  Sender: FDA-Public Use
  Company Number: US-ASTRAZENECA-2010SE04156

PATIENT
  Age: 12565 Day
  Sex: Female
  Weight: 98.4 kg

DRUGS (27)
  1. SEROQUEL [Suspect]
     Indication: BIPOLAR DISORDER
     Route: 048
     Dates: start: 20030701
  2. SEROQUEL [Suspect]
     Route: 048
     Dates: start: 20040707
  3. SEROQUEL [Suspect]
     Route: 048
     Dates: start: 20040707
  4. HYDROCHLOROTHIAZIDE [Concomitant]
     Indication: HYPERTENSION
     Dates: start: 20040901
  5. BENTYL [Concomitant]
     Indication: MUSCLE SPASMS
     Dosage: 20 TID, 10 MG 1 QID PRN
     Route: 048
     Dates: start: 20030604
  6. LAMICTAL [Concomitant]
     Indication: BIPOLAR DISORDER
     Dates: start: 20040707
  7. PRILOSEC [Concomitant]
     Indication: GASTROOESOPHAGEAL REFLUX DISEASE
     Dates: start: 20030225
  8. BENTYL [Concomitant]
     Indication: IRRITABLE BOWEL SYNDROME
     Dosage: 20 TID, 10 MG 1 QID PRN
     Route: 048
     Dates: start: 20030604
  9. BENTYL [Concomitant]
     Indication: ABDOMINAL PAIN
     Dosage: 20 TID, 10 MG 1 QID PRN
     Route: 048
     Dates: start: 20030604
  10. TANAFED [Concomitant]
     Indication: UPPER RESPIRATORY TRACT INFECTION
     Dosage: 2 - 4 TSP PRN
     Dates: start: 20040224
  11. CEPHALEXIN [Concomitant]
     Indication: BRONCHITIS
     Dates: start: 20040318
  12. LOMOTIL [Concomitant]
     Indication: DIARRHOEA
     Dosage: 2 QID PRN
     Route: 048
     Dates: start: 20030721
  13. REGLAN [Concomitant]
     Indication: IRRITABLE BOWEL SYNDROME
     Dates: start: 20031029
  14. ADVIL LIQUI-GELS [Concomitant]
     Dates: start: 20040224
  15. CEPHALEXIN [Concomitant]
     Indication: CONJUNCTIVITIS
     Dates: start: 20040318
  16. SEROQUEL [Suspect]
     Route: 048
     Dates: start: 20040101
  17. TOPROL-XL [Concomitant]
     Indication: HYPERTENSION
     Dates: start: 20030225
  18. ALBUTEROL [Concomitant]
     Indication: ASTHMA
     Dosage: 2 PUFFS QID
     Dates: start: 20030721
  19. DEPO-PROVERA [Concomitant]
     Dates: start: 20030721
  20. SEROQUEL [Suspect]
     Indication: SLEEP DISORDER
     Route: 048
     Dates: start: 20030701
  21. SEROQUEL [Suspect]
     Route: 048
     Dates: start: 20040101
  22. LITHIUM [Concomitant]
     Indication: BIPOLAR DISORDER
     Dates: start: 19920101
  23. LITHIUM [Concomitant]
     Dates: start: 20030225
  24. AUGMENTIN '125' [Concomitant]
     Indication: BRONCHITIS
     Dates: start: 20030210
  25. BIAXIN XL [Concomitant]
     Indication: UPPER RESPIRATORY TRACT INFECTION
     Dates: start: 20040224
  26. NEXIUM [Concomitant]
     Indication: GASTROOESOPHAGEAL REFLUX DISEASE
     Dates: start: 20040726
  27. LIPITOR [Concomitant]
     Indication: DYSLIPIDAEMIA
     Dates: start: 20040726

REACTIONS (5)
  - WEIGHT INCREASED [None]
  - HYPERLIPIDAEMIA [None]
  - OBESITY [None]
  - BLOOD CHOLESTEROL INCREASED [None]
  - TYPE 2 DIABETES MELLITUS [None]
